FAERS Safety Report 11343954 (Version 1)
Quarter: 2015Q3

REPORT INFORMATION
  Report Type: Spontaneous
  Country: US (occurrence: US)
  Receive Date: 20150806
  Receipt Date: 20150806
  Transmission Date: 20151125
  Serious: No
  Sender: FDA-Public Use
  Company Number: US-PFIZER INC-2015259695

PATIENT
  Sex: Male

DRUGS (3)
  1. NEURONTIN [Suspect]
     Active Substance: GABAPENTIN
     Dosage: 30000 MG, DAILY
  2. NEURONTIN [Suspect]
     Active Substance: GABAPENTIN
     Indication: PAIN
     Dosage: 20000 MG, DAILY
  3. NEURONTIN [Suspect]
     Active Substance: GABAPENTIN
     Dosage: 50000 MG, DAILY

REACTIONS (2)
  - Prescribed overdose [Unknown]
  - Malabsorption [Unknown]
